FAERS Safety Report 6354802-5 (Version None)
Quarter: 2009Q3

REPORT INFORMATION
  Report Type: 
  Country: None (occurrence: None)
  Receive Date: 20090914
  Receipt Date: 20090902
  Transmission Date: 20100115
  Serious: Yes (Other)
  Sender: FDA-Public Use
  Company Number: US-JNJFOC-20090901468

PATIENT
  Sex: Male
  Weight: 65.77 kg

DRUGS (6)
  1. REMICADE [Suspect]
     Indication: COLITIS ULCERATIVE
     Route: 042
  2. PREVACID [Concomitant]
  3. FAMOTIDINE [Concomitant]
  4. TYLENOL (CAPLET) [Concomitant]
  5. ALLOPURINOL [Concomitant]
  6. LEVOTHYROXINE SODIUM [Concomitant]

REACTIONS (1)
  - LYMPHOMA [None]
